FAERS Safety Report 4706283-2 (Version None)
Quarter: 2005Q3

REPORT INFORMATION
  Report Type: 
  Country: None (occurrence: None)
  Receive Date: 20050705
  Receipt Date: 20050620
  Transmission Date: 20060218
  Serious: Yes (Other)
  Sender: FDA-Public Use
  Company Number: 2005GB00920

PATIENT
  Age: 75 Year
  Sex: Male

DRUGS (1)
  1. LIDOCAINE [Suspect]
     Indication: LOCAL ANAESTHESIA
     Dosage: 2% STRENGTH
     Route: 058
     Dates: start: 20050510

REACTIONS (2)
  - PROCEDURAL COMPLICATION [None]
  - SYNCOPE VASOVAGAL [None]
